FAERS Safety Report 5621193-4 (Version None)
Quarter: 2008Q1

REPORT INFORMATION
  Report Type: 
  Country: None (occurrence: None)
  Receive Date: 20080114
  Receipt Date: 20061214
  Transmission Date: 20080703
  Serious: Yes (Hospitalization)
  Sender: FDA-Public Use
  Company Number: A03200607493

PATIENT
  Age: 77 Year
  Sex: Female
  Weight: 57.6068 kg

DRUGS (11)
  1. PLAVIX [Suspect]
     Indication: STENT PLACEMENT
     Dosage: ORAL
     Route: 048
     Dates: start: 20040701, end: 20040701
  2. QUINAPRIL HCL [Concomitant]
  3. METOPROLOL SUCCINATE [Concomitant]
  4. FUROSEMIDE [Concomitant]
  5. AMLODIPINE BESILATE [Concomitant]
  6. POTASSIUM CHLORIDE [Concomitant]
  7. SIMVASTATIN [Concomitant]
  8. ALENDRONATE SODIUM [Concomitant]
  9. ESCITALOPRAM OXALATE [Concomitant]
  10. ALPRAZOLAM [Concomitant]
  11. LANSOPRAZOLE [Concomitant]

REACTIONS (2)
  - HYPERTENSION [None]
  - RASH [None]
